FAERS Safety Report 11930211 (Version 1)
Quarter: 2016Q1

REPORT INFORMATION
  Report Type: Spontaneous
  Country: US (occurrence: None)
  Receive Date: 20160120
  Receipt Date: 20160120
  Transmission Date: 20160526
  Serious: Yes (Other)
  Sender: FDA-Public Use
  Company Number: None

PATIENT
  Age: 32 Year
  Sex: Male
  Weight: 96.62 kg

DRUGS (2)
  1. DIVALPROEX 250MG [Suspect]
     Active Substance: DIVALPROEX SODIUM
     Indication: EPILEPSY
     Dosage: 500MG 2 BID ORAL
     Route: 048
     Dates: start: 201502
  2. DIVALPROEX 500MG [Suspect]
     Active Substance: DIVALPROEX SODIUM
     Dosage: 250MG 1 BID ORAL
     Route: 048

REACTIONS (1)
  - Seizure [None]

NARRATIVE: CASE EVENT DATE: 20151224
